FAERS Safety Report 10428274 (Version 1)
Quarter: 2014Q3

REPORT INFORMATION
  Report Type: Spontaneous
  Country: US (occurrence: None)
  Receive Date: 20140829
  Receipt Date: 20140829
  Transmission Date: 20150326
  Serious: Yes (Hospitalization)
  Sender: FDA-Public Use
  Company Number: COR_00063_2014

PATIENT
  Age: 69 Year
  Sex: Male

DRUGS (7)
  1. DEPAKENE [Suspect]
     Active Substance: VALPROIC ACID
     Indication: PRODUCT USED FOR UNKNOWN INDICATION
     Route: 048
     Dates: start: 20021206, end: 20030130
  2. BELUSTINE [Suspect]
     Active Substance: LOMUSTINE
     Indication: PRODUCT USED FOR UNKNOWN INDICATION
     Dates: start: 20021227, end: 20021227
  3. PROCARBAZINE [Suspect]
     Active Substance: PROCARBAZINE
     Indication: PRODUCT USED FOR UNKNOWN INDICATION
     Dates: start: 20030103, end: 20030116
  4. NATULAN [Concomitant]
     Active Substance: PROCARBAZINE HYDROCHLORIDE
  5. CLAFORAN [Suspect]
     Active Substance: CEFOTAXIME SODIUM
     Indication: PRODUCT USED FOR UNKNOWN INDICATION
     Route: 048
     Dates: start: 20030119, end: 20030123
  6. ONCOVIN [Suspect]
     Active Substance: VINCRISTINE SULFATE
     Indication: PRODUCT USED FOR UNKNOWN INDICATION
     Dates: start: 20030103, end: 20030124
  7. ANTALVIC [Suspect]
     Active Substance: PROPOXYPHENE HYDROCHLORIDE
     Indication: PRODUCT USED FOR UNKNOWN INDICATION
     Route: 048
     Dates: start: 20021206, end: 20030130

REACTIONS (4)
  - Oropharyngeal discomfort [None]
  - Hypersensitivity [None]
  - Toxic epidermal necrolysis [None]
  - Skin disorder [None]

NARRATIVE: CASE EVENT DATE: 20030120
